FAERS Safety Report 24713688 (Version 1)
Quarter: 2024Q4

REPORT INFORMATION
  Report Type: Spontaneous
  Country: US (occurrence: US)
  Receive Date: 20241209
  Receipt Date: 20241209
  Transmission Date: 20250114
  Serious: No
  Sender: REGENERON
  Company Number: US-REGENERON PHARMACEUTICALS, INC.-2024-049649

PATIENT

DRUGS (2)
  1. EYLEA [Suspect]
     Active Substance: AFLIBERCEPT
     Indication: Product used for unknown indication
     Dosage: 2 MG (FORMULATION: GERRESHEIMER PFS, STRENGTH: 2MG/0.05ML)
  2. EYLEA [Suspect]
     Active Substance: AFLIBERCEPT
     Dosage: 2 MG (FORMULATION: GERRESHEIMER PFS, STRENGTH: 2MG/0.05ML)

REACTIONS (2)
  - Product storage error [Unknown]
  - Product dose omission issue [Unknown]
